FAERS Safety Report 22245676 (Version 7)
Quarter: 2025Q1

REPORT INFORMATION
  Report Type: Spontaneous
  Country: GB (occurrence: GB)
  Receive Date: 20230424
  Receipt Date: 20250224
  Transmission Date: 20250409
  Serious: Yes (Other)
  Sender: MYLAN
  Company Number: GB-MYLANLABS-2023M1032684

PATIENT
  Age: 46 Year
  Sex: Male
  Weight: 92 kg

DRUGS (15)
  1. CLOZARIL [Suspect]
     Active Substance: CLOZAPINE
     Indication: Schizophrenia
  2. EDOXABAN [Suspect]
     Active Substance: EDOXABAN
     Indication: Prophylaxis
     Dosage: 60 MILLIGRAM, QD
  3. PREGABALIN [Suspect]
     Active Substance: PREGABALIN
     Indication: Anxiety
     Dosage: 150 MILLIGRAM, BID
  4. DOCUSATE [Suspect]
     Active Substance: DOCUSATE
     Indication: Constipation
     Dosage: 100 MILLIGRAM, BID (12 HOURS)
  5. DOCUSATE [Suspect]
     Active Substance: DOCUSATE
     Dosage: 200 MILLIGRAM, BID
  6. LANSOPRAZOLE [Suspect]
     Active Substance: LANSOPRAZOLE
     Indication: Gastrointestinal disorder
     Dosage: 15 MILLIGRAM, QD
  7. ZOPICLONE [Suspect]
     Active Substance: ZOPICLONE
     Indication: Insomnia
  8. ZOPICLONE [Suspect]
     Active Substance: ZOPICLONE
  9. DIAZEPAM [Concomitant]
     Active Substance: DIAZEPAM
     Indication: Anxiety
  10. DIAZEPAM [Concomitant]
     Active Substance: DIAZEPAM
  11. PENICILLIN V [Concomitant]
     Active Substance: PENICILLIN V
     Indication: Prophylaxis
     Dosage: 250 MILLIGRAM, QD (MORE THAN 20 YEARS BUT UNCERTAIN IN CONSISTENT USE)
  12. CITALOPRAM [Concomitant]
     Active Substance: CITALOPRAM
     Indication: Anxiety
     Dosage: 40 MILLIGRAM, QD (MANY YEARS)
  13. POLYETHYLENE GLYCOL 3350\POTASSIUM CHLORIDE\SODIUM BICARBONATE\SODIUM [Concomitant]
     Active Substance: POLYETHYLENE GLYCOL 3350\POTASSIUM CHLORIDE\SODIUM BICARBONATE\SODIUM CHLORIDE
     Indication: Constipation
     Dosage: UNK, QD (1 SACHET DAILY, LONG TERM)
  14. INFLUENZA VIRUS VACCINE [Concomitant]
     Active Substance: INFLUENZA VIRUS VACCINE
     Indication: Immunisation
  15. COVID-19 vaccine [Concomitant]
     Indication: Immunisation

REACTIONS (5)
  - Neutropenia [Recovered/Resolved]
  - Blood test abnormal [Recovered/Resolved]
  - Hypovitaminosis [Recovered/Resolved]
  - Eosinophil count decreased [Recovering/Resolving]
  - Off label use [Unknown]

NARRATIVE: CASE EVENT DATE: 20200901
